FAERS Safety Report 8305013-5 (Version None)
Quarter: 2012Q2

REPORT INFORMATION
  Report Type: 
  Country: None (occurrence: None)
  Receive Date: 20120423
  Receipt Date: 20120413
  Transmission Date: 20120825
  Serious: Yes (Hospitalization)
  Sender: FDA-Public Use
  Company Number: NL-MEDIMMUNE-MEDI-0015227

PATIENT
  Sex: Male
  Weight: 6.78 kg

DRUGS (2)
  1. SYNAGIS [Suspect]
     Indication: HEART DISEASE CONGENITAL
     Route: 030
     Dates: start: 20110927, end: 20120216
  2. SYNAGIS [Suspect]
     Route: 030
     Dates: start: 20120315, end: 20120413

REACTIONS (1)
  - EPILEPSY [None]
